APPROVED DRUG PRODUCT: CYPROHEPTADINE HYDROCHLORIDE
Active Ingredient: CYPROHEPTADINE HYDROCHLORIDE
Strength: 4MG
Dosage Form/Route: TABLET;ORAL
Application: A087129 | Product #001
Applicant: STRIDES PHARMA INTERNATIONAL AG
Approved: Approved Prior to Jan 1, 1982 | RLD: No | RS: No | Type: DISCN